FAERS Safety Report 8561210-5 (Version None)
Quarter: 2012Q3

REPORT INFORMATION
  Report Type: 
  Country: None (occurrence: None)
  Receive Date: 20120723
  Receipt Date: 20120711
  Transmission Date: 20120928
  Serious: Yes (Other)
  Sender: FDA-Public Use
  Company Number: DSA_58517_2012

PATIENT
  Age: 69 Year
  Sex: Male

DRUGS (3)
  1. FLUOROURACIL [Suspect]
     Indication: OESOPHAGEAL SQUAMOUS CELL CARCINOMA
     Dosage: 1000 MG ROUTE, FORM AND FREQUENCY NOT REPORTED; 1200 MG ROUTE, FORM AND FREQUENCY NOT REPORTED
  2. CISPLATIN [Suspect]
     Indication: OESOPHAGEAL SQUAMOUS CELL CARCINOMA
     Dosage: 100 MG ROUTE, FORM AND FREQUENCY NOT REPORTED
  3. DOCETAXEL [Suspect]
     Indication: OESOPHAGEAL SQUAMOUS CELL CARCINOMA
     Dosage: 100 MG ROUTE, FORM AND FREQUENCT NOT REPORTED

REACTIONS (2)
  - WHITE BLOOD CELL COUNT DECREASED [None]
  - RENAL DISORDER [None]
